FAERS Safety Report 26120069 (Version 1)
Quarter: 2025Q4

REPORT INFORMATION
  Report Type: Spontaneous
  Country: EU (occurrence: EU)
  Receive Date: 20251204
  Receipt Date: 20251204
  Transmission Date: 20260117
  Serious: Yes (Other)
  Sender: ROCHE
  Company Number: None

PATIENT
  Age: 63 Year
  Sex: Male
  Weight: 85 kg

DRUGS (1)
  1. OBINUTUZUMAB [Suspect]
     Active Substance: OBINUTUZUMAB
     Indication: Immunoglobulin G4 related disease
     Route: 051
     Dates: start: 20251114, end: 20251114

REACTIONS (1)
  - Parotid gland enlargement [Recovering/Resolving]

NARRATIVE: CASE EVENT DATE: 20251114
